FAERS Safety Report 4676696-6 (Version None)
Quarter: 2005Q2

REPORT INFORMATION
  Report Type: 
  Country: None (occurrence: None)
  Receive Date: 20050527
  Receipt Date: 20050518
  Transmission Date: 20051028
  Serious: Yes (Other)
  Sender: FDA-Public Use
  Company Number: 2005AC00754

PATIENT
  Age: 54 Year

DRUGS (6)
  1. LIGNOCAINE [Suspect]
     Indication: ANAESTHESIA
  2. MIDAZOLAM [Concomitant]
     Indication: ANAESTHESIA
  3. FENTANYL [Concomitant]
     Indication: ANAESTHESIA
  4. PROPOFOL [Concomitant]
     Indication: ANAESTHESIA
  5. ULTANE [Concomitant]
     Indication: ANAESTHESIA
  6. ULTANE [Concomitant]

REACTIONS (2)
  - ADDUCTOR VOCAL CORD WEAKNESS [None]
  - LARYNGOSPASM [None]
